FAERS Safety Report 6079272-6 (Version None)
Quarter: 2009Q1

REPORT INFORMATION
  Report Type: 
  Country: None (occurrence: None)
  Receive Date: 20090216
  Receipt Date: 20090212
  Transmission Date: 20090719
  Serious: Yes (Death)
  Sender: FDA-Public Use
  Company Number: FR-ASTRAZENECA-2009CG00363

PATIENT
  Age: 900 Month
  Sex: Male

DRUGS (17)
  1. NEXIUM [Suspect]
     Route: 042
  2. TAZOCILLINE [Suspect]
     Route: 042
     Dates: start: 20090108, end: 20090116
  3. FORTUM [Suspect]
     Route: 042
     Dates: start: 20081228, end: 20090107
  4. FLAGYL [Suspect]
     Route: 042
     Dates: end: 20090111
  5. CANCIDAS [Suspect]
     Route: 042
     Dates: start: 20090108, end: 20090119
  6. NEUPOGEN [Suspect]
     Route: 042
     Dates: start: 20081228
  7. PERFALGAN [Suspect]
     Route: 042
  8. CALCIUM GLUCONATE [Suspect]
     Route: 042
  9. OFLOCET [Suspect]
     Route: 042
     Dates: start: 20081228, end: 20090108
  10. AMBISOME [Suspect]
     Route: 042
     Dates: start: 20081230, end: 20090107
  11. ANTILYMPHOCYTE SERUM [Concomitant]
     Dates: start: 20090110
  12. CYCLOSPORINE [Concomitant]
     Dates: start: 20090110
  13. MUCOMYST [Concomitant]
  14. VITAMINE K [Concomitant]
     Dates: start: 20090108
  15. LEDERFOLINE [Concomitant]
     Dates: start: 20090108
  16. APHERESIS PLATELETS CONCENTRATE [Concomitant]
     Dates: start: 20090108
  17. RED BLOOD CELLS [Concomitant]
     Dates: start: 20090108

REACTIONS (1)
  - CHOLESTASIS [None]
